FAERS Safety Report 14587216 (Version 1)
Quarter: 2018Q1

REPORT INFORMATION
  Report Type: Spontaneous
  Country: IN (occurrence: IN)
  Receive Date: 20180301
  Receipt Date: 20180301
  Transmission Date: 20180509
  Serious: Yes (Other)
  Sender: FDA-Public Use
  Company Number: IN-PFIZER INC-2018081704

PATIENT
  Age: 75 Year
  Sex: Female

DRUGS (1)
  1. AROMASIN [Suspect]
     Active Substance: EXEMESTANE
     Indication: BREAST CANCER
     Dosage: 25 MG, UNK
     Route: 048
     Dates: start: 20140716

REACTIONS (5)
  - Hepatic steatosis [Unknown]
  - Lymphadenopathy [Unknown]
  - Cholecystitis [Unknown]
  - Cholelithiasis [Unknown]
  - Diverticulum [Unknown]
